FAERS Safety Report 12681521 (Version 1)
Quarter: 2016Q3

REPORT INFORMATION
  Report Type: Spontaneous
  Country: TR (occurrence: TR)
  Receive Date: 20160824
  Receipt Date: 20160824
  Transmission Date: 20161109
  Serious: Yes (Other)
  Sender: FDA-Public Use
  Company Number: TR-TEVA-2016-16193

PATIENT
  Age: 60 Year
  Sex: Male

DRUGS (2)
  1. SINDAXEL [Suspect]
     Active Substance: PACLITAXEL
     Indication: NON-SMALL CELL LUNG CANCER
     Dosage: 300 MILLIGRAM DAILY; SINDAXEL 150 MG. DAILY DOSE 300 MG.
     Route: 042
     Dates: start: 20160610, end: 20160610
  2. CARBOPLATIN. [Concomitant]
     Active Substance: CARBOPLATIN
     Dosage: CARBOPLATIN 500 MG

REACTIONS (4)
  - Erythema [Recovered/Resolved]
  - Burning sensation [Recovered/Resolved]
  - Respiratory distress [Recovered/Resolved]
  - Palmar erythema [Recovered/Resolved]

NARRATIVE: CASE EVENT DATE: 20160610
